FAERS Safety Report 24411260 (Version 1)
Quarter: 2024Q4

REPORT INFORMATION
  Report Type: Spontaneous
  Country: CA (occurrence: CA)
  Receive Date: 20241008
  Receipt Date: 20241008
  Transmission Date: 20250115
  Serious: Yes (Death, Other)
  Sender: PFIZER
  Company Number: CA-PFIZER INC-202400271566

PATIENT
  Age: 84 Year
  Sex: Male

DRUGS (6)
  1. VYNDAMAX [Suspect]
     Active Substance: TAFAMIDIS
     Indication: Cardiac amyloidosis
     Dosage: 61 MG 1X/DAY
     Route: 048
     Dates: start: 20231122, end: 2024
  2. CANDESARTAN [Concomitant]
     Active Substance: CANDESARTAN
     Dosage: 8 MG DAILY
  3. NOVO SPIROTON [Concomitant]
     Dosage: 25 MG
  4. ASPIRIN [Concomitant]
     Active Substance: ASPIRIN
     Dosage: 80 UG DAILY
  5. ROSUVASTATIN [Concomitant]
     Active Substance: ROSUVASTATIN
     Dosage: 10 MG DAILY
  6. GOSERELIN [Concomitant]
     Active Substance: GOSERELIN
     Dosage: INJ Q 3 MONTHS

REACTIONS (1)
  - Death [Fatal]

NARRATIVE: CASE EVENT DATE: 20240101
